FAERS Safety Report 6475017-6 (Version None)
Quarter: 2009Q4

REPORT INFORMATION
  Report Type: 
  Country: None (occurrence: None)
  Receive Date: 20091204
  Receipt Date: 20090602
  Transmission Date: 20100525
  Serious: Yes (Hospitalization, Other)
  Sender: FDA-Public Use
  Company Number: CA-ELI_LILLY_AND_COMPANY-CA200903001252

PATIENT
  Sex: Female

DRUGS (12)
  1. FORTEO [Suspect]
     Indication: OSTEOPOROSIS
     Dosage: 20 UG, DAILY (1/D)
     Dates: start: 20080417, end: 20090201
  2. VASOTEC [Concomitant]
  3. ADALAT [Concomitant]
  4. ELTROXIN [Concomitant]
  5. LIPITOR [Concomitant]
  6. ALBUTEROL [Concomitant]
  7. NOVA [Concomitant]
  8. GABAPENTIN [Concomitant]
  9. OXYCONTIN [Concomitant]
  10. LORAZEPAM [Concomitant]
  11. MORPHINE [Concomitant]
  12. MELOXICAM [Concomitant]

REACTIONS (9)
  - ASTHENIA [None]
  - CHRONIC OBSTRUCTIVE PULMONARY DISEASE [None]
  - FALL [None]
  - GENERAL PHYSICAL HEALTH DETERIORATION [None]
  - HYPONATRAEMIA [None]
  - LUNG SQUAMOUS CELL CARCINOMA STAGE I [None]
  - MUSCULOSKELETAL DISCOMFORT [None]
  - PUBIS FRACTURE [None]
  - SPINAL FRACTURE [None]
